FAERS Safety Report 8195797 (Version 2)
Quarter: 2015Q2

REPORT INFORMATION
  Report Type: Report from Study
  Country: DE (occurrence: DE)
  Receive Date: 20111024
  Receipt Date: 20150421
  Transmission Date: 20150821
  Serious: Yes (Other)
  Sender: FDA-Public Use
  Company Number: PHHO2011DE17599

PATIENT
  Age: 20 Year
  Sex: Male

DRUGS (7)
  1. VINCRISTINE [Concomitant]
     Active Substance: VINCRISTINE
     Indication: EWING^S SARCOMA
     Dosage: 2 MG
     Route: 042
     Dates: start: 20091029, end: 20100927
  2. ACTINOMYCIN D [Concomitant]
     Active Substance: DACTINOMYCIN
     Indication: EWING^S SARCOMA
     Dosage: 1.5 MG, UNK
     Route: 042
     Dates: start: 20100324, end: 20100928
  3. CYCLOPHOSPHAMIDE. [Suspect]
     Active Substance: CYCLOPHOSPHAMIDE
     Indication: EWING^S SARCOMA
     Dosage: 3 G, UNK
     Route: 042
     Dates: start: 20100902, end: 20100927
  4. IFOSFAMIDE. [Suspect]
     Active Substance: IFOSFAMIDE
     Indication: EWING^S SARCOMA
     Dosage: 6 G, UNK
     Route: 042
     Dates: start: 20091030, end: 20100806
  5. DOXORUBICIN [Concomitant]
     Active Substance: DOXORUBICIN
     Indication: EWING^S SARCOMA
     Dosage: 40 MG
     Route: 042
     Dates: start: 20091029, end: 20100219
  6. ZOLEDRONATE [Suspect]
     Active Substance: ZOLEDRONIC ACID
     Indication: EWING^S SARCOMA
     Dosage: 4 MG, UNK
     Route: 042
     Dates: start: 20100805
  7. ETOPOSIDE. [Concomitant]
     Active Substance: ETOPOSIDE
     Indication: EWING^S SARCOMA
     Dosage: 300 MG, UNK
     Route: 042
     Dates: start: 20091029, end: 20100707

REACTIONS (1)
  - Renal tubular disorder [Not Recovered/Not Resolved]

NARRATIVE: CASE EVENT DATE: 20110624
